FAERS Safety Report 4522840-0 (Version None)
Quarter: 2004Q4

REPORT INFORMATION
  Report Type: 
  Country: None (occurrence: None)
  Receive Date: 20041207
  Receipt Date: 20041125
  Transmission Date: 20050328
  Serious: Yes (Hospitalization)
  Sender: FDA-Public Use
  Company Number: A02200403515

PATIENT
  Age: 79 Year
  Sex: Female

DRUGS (6)
  1. KERLONE [Suspect]
     Indication: HYPERTENSION
     Dosage: 20 MG OD ORAL
     Route: 048
  2. ALDACTONE [Suspect]
     Indication: HYPERTENSION
     Dosage: 25 MG OD ORAL
     Route: 048
  3. DIAMICRON (GLICLAZIDE) [Concomitant]
  4. OSSOPAN (DURAPATITE) [Concomitant]
  5. CHONDROSULF (CHONDROITIN SULFATE SODIUM) [Concomitant]
  6. ACTONEL [Concomitant]

REACTIONS (6)
  - DIZZINESS [None]
  - FALL [None]
  - LOSS OF CONSCIOUSNESS [None]
  - MALAISE [None]
  - ORTHOSTATIC HYPOTENSION [None]
  - VERTIGO [None]
